FAERS Safety Report 10743486 (Version 1)
Quarter: 2015Q1

REPORT INFORMATION
  Report Type: Spontaneous
  Country: TR (occurrence: TR)
  Receive Date: 20150128
  Receipt Date: 20150128
  Transmission Date: 20150721
  Serious: Yes (Other)
  Sender: FDA-Public Use
  Company Number: PHHY2015TR007652

PATIENT
  Age: 72 Year
  Sex: Female

DRUGS (1)
  1. GENTAMICIN. [Suspect]
     Active Substance: GENTAMICIN
     Indication: PRODUCT USED FOR UNKNOWN INDICATION
     Route: 065

REACTIONS (9)
  - Pupillary reflex impaired [Unknown]
  - Corneal oedema [Unknown]
  - Corneal disorder [Unknown]
  - Conjunctival oedema [Unknown]
  - Hyphaema [Unknown]
  - Toxic anterior segment syndrome [Unknown]
  - Accidental exposure to product [Unknown]
  - Corneal degeneration [Unknown]
  - Overdose [Unknown]
